FAERS Safety Report 19468878 (Version 1)
Quarter: 2021Q2

REPORT INFORMATION
  Report Type: Other
  Country: US (occurrence: US)
  Receive Date: 20210628
  Receipt Date: 20210628
  Transmission Date: 20210717
  Serious: Yes (Hospitalization)
  Sender: FDA-Public Use
  Company Number: US-ROCHE-2854935

PATIENT
  Age: 55 Year
  Sex: Female

DRUGS (6)
  1. FLUOXETINE [Concomitant]
     Active Substance: FLUOXETINE HYDROCHLORIDE
  2. RITUXIMAB. [Suspect]
     Active Substance: RITUXIMAB
     Indication: GLOMERULONEPHROPATHY
     Route: 042
  3. LEVOTHYROXINE. [Concomitant]
     Active Substance: LEVOTHYROXINE
  4. METHYLPHENIDATE. [Concomitant]
     Active Substance: METHYLPHENIDATE
  5. LITHIUM CARBONATE. [Concomitant]
     Active Substance: LITHIUM CARBONATE
  6. ETANERCEPT [Concomitant]
     Active Substance: ETANERCEPT

REACTIONS (1)
  - COVID-19 [Unknown]
